FAERS Safety Report 23066307 (Version 1)
Quarter: 2023Q4

REPORT INFORMATION
  Report Type: Spontaneous
  Country: ES (occurrence: ES)
  Receive Date: 20231015
  Receipt Date: 20231015
  Transmission Date: 20240110
  Serious: Yes (Life-Threatening, Hospitalization)
  Sender: FDA-Public Use
  Company Number: None

PATIENT
  Age: 70 Year
  Sex: Male

DRUGS (4)
  1. BISOPROLOL [Suspect]
     Active Substance: BISOPROLOL\BISOPROLOL FUMARATE
     Indication: Atrial fibrillation
     Dosage: 2.5 MILLIGRAM DAILY; 1-0-0 (RECEIVES TWO DOSES)
     Dates: start: 20230821, end: 20230822
  2. METHYLPREDNISOLONE [Concomitant]
     Active Substance: METHYLPREDNISOLONE
     Indication: Bronchitis
     Dosage: 60 MILLIGRAM DAILY; 60 MG ON 21/08/2023
     Dates: start: 20230821, end: 20230821
  3. FUROSEMIDE [Concomitant]
     Active Substance: FUROSEMIDE
     Indication: Cardiac failure
     Dosage: 80 MG ON 21/08, 40 MG ON 22/08, 2 ML
     Dates: start: 20230821, end: 20230822
  4. CEFTRIAXONE [Concomitant]
     Active Substance: CEFTRIAXONE\CEFTRIAXONE SODIUM
     Indication: Bronchitis
     Dosage: 1 GRAM DAILY;
     Route: 042
     Dates: start: 20230821, end: 20230822

REACTIONS (2)
  - Acute pulmonary oedema [Recovered/Resolved]
  - Cardiogenic shock [Recovered/Resolved]

NARRATIVE: CASE EVENT DATE: 20230822
